FAERS Safety Report 7768943-9 (Version None)
Quarter: 2011Q3

REPORT INFORMATION
  Report Type: 
  Country: None (occurrence: None)
  Receive Date: 20110922
  Receipt Date: 20101220
  Transmission Date: 20111222
  Serious: No
  Sender: FDA-Public Use
  Company Number: US-ASTRAZENECA-2009SE29667

PATIENT
  Age: 47 Year
  Sex: Female
  Weight: 70.3 kg

DRUGS (4)
  1. SEROQUEL [Suspect]
     Route: 048
  2. SEROQUEL [Suspect]
     Indication: BIPOLAR DISORDER
     Route: 048
  3. SEROQUEL [Suspect]
     Route: 048
  4. CELEXA [Concomitant]

REACTIONS (6)
  - DYSPHAGIA [None]
  - INSOMNIA [None]
  - HALLUCINATION, VISUAL [None]
  - HEART RATE INCREASED [None]
  - PALPITATIONS [None]
  - DRUG DOSE OMISSION [None]
